FAERS Safety Report 5223653-7 (Version None)
Quarter: 2007Q1

REPORT INFORMATION
  Report Type: 
  Country: None (occurrence: None)
  Receive Date: 20070130
  Receipt Date: 20070123
  Transmission Date: 20070707
  Serious: Yes (Hospitalization)
  Sender: FDA-Public Use
  Company Number: AU-SANOFI-SYNTHELABO-F01200700079

PATIENT
  Sex: Male

DRUGS (9)
  1. RAMIPRIL [Concomitant]
  2. TEVETEN [Concomitant]
  3. BEVACIZUMAB [Suspect]
     Dosage: 360 MG 2/52
  4. LEUCOVORIN CALCIUM [Suspect]
     Dosage: 370 MG 2/52
     Route: 042
  5. FLUOROURACIL [Suspect]
     Dosage: 730MG IV BOLUS AND 1100MG/M2 CONTINUOUS INFUSION 2/52
     Route: 042
  6. OXALIPLATIN [Suspect]
     Indication: COLON CANCER
     Dosage: 150 MG 2/52
     Route: 042
  7. RECTOGESIC [Concomitant]
  8. PANALDINE [Concomitant]
     Dates: start: 20070109
  9. PANTOPRAZOLE SODIUM [Concomitant]
     Dates: start: 20061031

REACTIONS (1)
  - ANAL FISSURE [None]
